FAERS Safety Report 9300701 (Version 1)
Quarter: 2013Q2

REPORT INFORMATION
  Report Type: Report from Study
  Country: US (occurrence: US)
  Receive Date: 20130521
  Receipt Date: 20130521
  Transmission Date: 20140414
  Serious: Yes (Other)
  Sender: FDA-Public Use
  Company Number: PHEH2013US001167

PATIENT
  Age: 37 Year
  Sex: Female
  Weight: 106.12 kg

DRUGS (6)
  1. AFINITOR [Suspect]
     Indication: BREAST CANCER
     Dosage: 10 MG, DAILY
     Route: 048
     Dates: start: 201211
  2. AROMASIN [Concomitant]
     Indication: BREAST CANCER
     Dosage: 25 MG
     Route: 048
  3. BACTRIM [Concomitant]
  4. LUPRON [Concomitant]
  5. LUPRON [Concomitant]
     Dates: start: 20130221
  6. ZOMETA [Concomitant]

REACTIONS (12)
  - Cholecystitis acute [Unknown]
  - Cholelithiasis [Unknown]
  - Nausea [Unknown]
  - Vomiting [Unknown]
  - Abdominal pain [Unknown]
  - Decreased activity [Unknown]
  - Appetite disorder [Unknown]
  - Abdominal tenderness [Unknown]
  - Cholecystitis infective [Unknown]
  - Blood glucose increased [Unknown]
  - Pyrexia [Unknown]
  - Diarrhoea [Unknown]
